FAERS Safety Report 8502057-5 (Version None)
Quarter: 2012Q3

REPORT INFORMATION
  Report Type: 
  Country: None (occurrence: None)
  Receive Date: 20120711
  Receipt Date: 20120621
  Transmission Date: 20120928
  Serious: Yes (Hospitalization)
  Sender: FDA-Public Use
  Company Number: US-JNJFOC-20120503764

PATIENT
  Age: 8 Decade
  Sex: Female

DRUGS (2)
  1. REMICADE [Suspect]
     Indication: PRODUCT USED FOR UNKNOWN INDICATION
     Route: 042
     Dates: start: 20070209
  2. METHOTREXATE [Concomitant]

REACTIONS (4)
  - URINARY TRACT INFECTION [None]
  - SEPSIS [None]
  - ESCHERICHIA INFECTION [None]
  - INFECTION [None]
